FAERS Safety Report 4511130-8 (Version None)
Quarter: 2004Q4

REPORT INFORMATION
  Report Type: 
  Country: None (occurrence: None)
  Receive Date: 20041012
  Receipt Date: 20040621
  Transmission Date: 20050328
  Serious: No
  Sender: FDA-Public Use
  Company Number: PHEH2004US05919

PATIENT
  Age: 69 Year
  Sex: Female

DRUGS (3)
  1. ELIDEL [Suspect]
     Indication: BLEPHARITIS
     Dosage: BID, TOPICAL
     Route: 061
     Dates: start: 20040519, end: 20040520
  2. SYNTHROID [Concomitant]
  3. FOSAMAX [Concomitant]

REACTIONS (4)
  - APPLICATION SITE BURNING [None]
  - APPLICATION SITE ERYTHEMA [None]
  - APPLICATION SITE PAIN [None]
  - EYE IRRITATION [None]
